FAERS Safety Report 25116940 (Version 2)
Quarter: 2025Q2

REPORT INFORMATION
  Report Type: Spontaneous
  Country: US (occurrence: US)
  Receive Date: 20250325
  Receipt Date: 20250407
  Transmission Date: 20250716
  Serious: Yes (Other)
  Sender: BRISTOL MYERS SQUIBB
  Company Number: US-BRISTOL-MYERS SQUIBB COMPANY-2025-042573

PATIENT
  Age: 69 Year
  Sex: Female

DRUGS (3)
  1. APIXABAN [Suspect]
     Active Substance: APIXABAN
     Indication: Cerebrovascular accident
  2. APIXABAN [Suspect]
     Active Substance: APIXABAN
     Indication: Coagulation factor V level abnormal
  3. MEROPENEM [Concomitant]
     Active Substance: MEROPENEM
     Indication: Cystitis

REACTIONS (2)
  - Retinal haemorrhage [Unknown]
  - Off label use [Unknown]
